FAERS Safety Report 4606846-9 (Version None)
Quarter: 2005Q1

REPORT INFORMATION
  Report Type: 
  Country: None (occurrence: None)
  Receive Date: 20050314
  Receipt Date: 20050301
  Transmission Date: 20050727
  Serious: Yes (Other)
  Sender: FDA-Public Use
  Company Number: 200511655US

PATIENT
  Age: 31 Year
  Sex: Female

DRUGS (3)
  1. LANTUS [Suspect]
     Dosage: DOSE UNIT: UNITS
     Route: 058
  2. OPTICLIK (INSULIN INJECTION PEN) [Suspect]
     Dosage: DOSE: UNK
  3. HUMALOG [Concomitant]
     Dosage: DOSE: SLIDING SCALE

REACTIONS (12)
  - BLOOD GLUCOSE INCREASED [None]
  - CATARACT [None]
  - COMA [None]
  - EYE EXCISION [None]
  - EYE OPERATION [None]
  - FLAT AFFECT [None]
  - HYPERHIDROSIS [None]
  - HYPOGLYCAEMIC COMA [None]
  - LOSS OF CONSCIOUSNESS [None]
  - MUSCULOSKELETAL STIFFNESS [None]
  - REFUSAL OF TREATMENT BY PATIENT [None]
  - TRISMUS [None]
